FAERS Safety Report 9164650 (Version 3)
Quarter: 2013Q4

REPORT INFORMATION
  Report Type: Spontaneous
  Country: GB (occurrence: None)
  Receive Date: 20130221
  Receipt Date: 20131010
  Transmission Date: 20140711
  Serious: Yes (Hospitalization)
  Sender: FDA-Public Use
  Company Number: ABR_00839_2013

PATIENT
  Age: 60 Year
  Sex: 0

DRUGS (17)
  1. ERYTHROMYCIN (ERYTHROMYCIN) [Suspect]
     Indication: GASTROINTESTINAL MOTILITY DISORDER
     Dosage: [CUMULATIVE DOSE TO ONSET: 18734 MG]
     Route: 042
     Dates: start: 20110314, end: 20110317
  2. CLARITHROMYCIN (CLARITHROMYCIN) [Suspect]
     Indication: PRODUCT USED FOR UNKNOWN INDICATION
     Dosage: [1 DOSE ADMINISTERED]
     Route: 048
     Dates: start: 20110310, end: 20110310
  3. CLARITHROMYCIN (CLARITHROMYCIN) [Suspect]
     Dosage: [1 DOSE ADMINISTERED]
     Route: 048
     Dates: start: 20110310, end: 20110310
  4. AMOXICILLIN (AMOXICILLIN) [Suspect]
     Indication: PRODUCT USED FOR UNKNOWN INDICATION
     Dosage: [1 DOSE ADMINISTERED]
     Route: 048
     Dates: start: 20110310, end: 20110310
  5. LANSOPRAZOLE (LANSOPRAZOLE) [Suspect]
     Indication: PRODUCT USED FOR UNKNOWN INDICATION
     Dosage: [MORNING]
     Route: 048
  6. FLUCLOXACILLIN [Suspect]
     Indication: PRODUCT USED FOR UNKNOWN INDICATION
     Dosage: [4 DOSES ADMINISTERED]
     Route: 048
     Dates: start: 20110329, end: 20110330
  7. LEVOFLOXACIN (LEVOFLOXACIN) [Suspect]
     Indication: PRODUCT USED FOR UNKNOWN INDICATION
     Route: 042
     Dates: start: 20110311, end: 20110321
  8. MEROPENEM (MEROPENEM) [Suspect]
     Indication: PRODUCT USED FOR UNKNOWN INDICATION
     Route: 042
     Dates: start: 20110312, end: 20110321
  9. TEICOPLANIN (TEICOPLANIN) [Suspect]
     Indication: PRODUCT USED FOR UNKNOWN INDICATION
     Route: 042
     Dates: start: 20110310, end: 20110314
  10. LOPERAMIDE [Concomitant]
  11. HYOSCINE BUTYLBROMIDE [Concomitant]
  12. FLUOXETINE [Concomitant]
  13. NICOTINE [Concomitant]
  14. PARACETAMOL [Concomitant]
  15. DALTEPARIN [Concomitant]
  16. FUROSEMIDE [Concomitant]
  17. FERROUS SULFATE [Concomitant]

REACTIONS (2)
  - Clostridium difficile colitis [None]
  - Gastrointestinal hypermotility [None]
